FAERS Safety Report 24401168 (Version 1)
Quarter: 2024Q4

REPORT INFORMATION
  Report Type: Spontaneous
  Country: GB (occurrence: GB)
  Receive Date: 20241006
  Receipt Date: 20241006
  Transmission Date: 20250114
  Serious: Yes (Hospitalization)
  Sender: DEXCEL
  Company Number: None

PATIENT
  Sex: Male

DRUGS (3)
  1. OMEPRAZOLE [Interacting]
     Active Substance: OMEPRAZOLE
  2. CLOZAPINE [Interacting]
     Active Substance: CLOZAPINE
     Dates: start: 20221001, end: 202305
  3. LANSOPRAZOLE [Interacting]
     Active Substance: LANSOPRAZOLE

REACTIONS (3)
  - Illness [Unknown]
  - Vomiting [Unknown]
  - Drug interaction [Unknown]
